FAERS Safety Report 9675678 (Version 1)
Quarter: 2013Q4

REPORT INFORMATION
  Report Type: Spontaneous
  Country: US (occurrence: US)
  Receive Date: 20131107
  Receipt Date: 20131107
  Transmission Date: 20140711
  Serious: Yes (Hospitalization)
  Sender: FDA-Public Use
  Company Number: US-CUBIST PHARMACEUTICAL, INC.-2013CBST000749

PATIENT
  Sex: 0

DRUGS (2)
  1. CUBICIN [Suspect]
     Indication: CELLULITIS
     Dosage: 2-3 DOSES, UNK
     Route: 065
  2. CUBICIN [Suspect]
     Indication: OFF LABEL USE

REACTIONS (1)
  - Rash generalised [Unknown]
